FAERS Safety Report 23508421 (Version 1)
Quarter: 2024Q1

REPORT INFORMATION
  Report Type: Report from Study
  Country: US (occurrence: None)
  Receive Date: 20240209
  Receipt Date: 20240209
  Transmission Date: 20240410
  Serious: Yes (Hospitalization)
  Sender: FDA-Public Use
  Company Number: 2024A028582

PATIENT
  Age: 9 Year
  Sex: Male
  Weight: 26.3 kg

DRUGS (3)
  1. KOSELUGO [Suspect]
     Active Substance: SELUMETINIB
     Indication: Neurofibromatosis
     Route: 048
  2. AMOXICILLIN [Concomitant]
     Active Substance: AMOXICILLIN
  3. BURT^S BEES COUGH SYRUP [Concomitant]

REACTIONS (1)
  - Pneumonia [Recovering/Resolving]

NARRATIVE: CASE EVENT DATE: 20240129
